FAERS Safety Report 9909532 (Version 1)
Quarter: 2014Q1

REPORT INFORMATION
  Report Type: Spontaneous
  Country: US (occurrence: None)
  Receive Date: 20140214
  Receipt Date: 20140214
  Transmission Date: 20141002
  Serious: No
  Sender: FDA-Public Use
  Company Number: None

PATIENT
  Age: 44 Year
  Sex: Male

DRUGS (9)
  1. LURASIDONE [Suspect]
     Dosage: 80
     Route: 048
  2. ABILIFY [Concomitant]
  3. CLOZAPINE [Concomitant]
  4. DEPAKOTE [Concomitant]
  5. LAMICTAL [Concomitant]
  6. HALDOL [Concomitant]
  7. GEODON [Concomitant]
  8. TRAZODONE [Concomitant]
  9. TRILEPTAL [Concomitant]

REACTIONS (7)
  - Catatonia [None]
  - Loss of consciousness [None]
  - Blood sodium decreased [None]
  - Blood chloride decreased [None]
  - Blood creatine phosphokinase increased [None]
  - Fall [None]
  - Head injury [None]
